FAERS Safety Report 5002483-5 (Version None)
Quarter: 2006Q2

REPORT INFORMATION
  Report Type: 
  Country: None (occurrence: None)
  Receive Date: 20060515
  Receipt Date: 20050909
  Transmission Date: 20061013
  Serious: Yes (Hospitalization)
  Sender: FDA-Public Use
  Company Number: US-MERCK-0509USA01177

PATIENT
  Age: 59 Year
  Sex: Female
  Weight: 84 kg

DRUGS (8)
  1. VIOXX [Suspect]
     Indication: OSTEOARTHRITIS
     Route: 048
     Dates: start: 19990101, end: 20040901
  2. VIOXX [Suspect]
     Route: 048
  3. COZAAR [Concomitant]
     Route: 048
  4. LASIX [Concomitant]
     Route: 065
  5. PREMARIN [Concomitant]
     Route: 065
  6. INSULIN [Concomitant]
     Route: 065
  7. NEURONTIN [Concomitant]
     Route: 065
  8. SODIUM SALICYLATE [Concomitant]
     Route: 065

REACTIONS (9)
  - ANXIETY [None]
  - CATARACT [None]
  - CHEST PAIN [None]
  - CORONARY ARTERY DISEASE [None]
  - MYOCARDIAL INFARCTION [None]
  - NEUROPATHY PERIPHERAL [None]
  - SENILE GENITAL ATROPHY [None]
  - URINARY INCONTINENCE [None]
  - VARICOSE VEINS VULVAL [None]
